FAERS Safety Report 6866005-6 (Version None)
Quarter: 2010Q3

REPORT INFORMATION
  Report Type: 
  Country: None (occurrence: None)
  Receive Date: 20100719
  Receipt Date: 20100709
  Transmission Date: 20110219
  Serious: Yes (Hospitalization)
  Sender: FDA-Public Use
  Company Number: 2010EU003265

PATIENT
  Age: 68 Year
  Sex: Male

DRUGS (4)
  1. VESICARE [Suspect]
     Dosage: 5 MG, /D
  2. METOPROLOL SUCCINATE [Suspect]
     Indication: ESSENTIAL HYPERTENSION
     Dosage: 200 MG, /D
  3. ENALAPRIL MALEATE [Suspect]
     Indication: ESSENTIAL HYPERTENSION
     Dosage: 10 MG, /D, ORAL
     Route: 048
  4. ALFUZOSIN (ALFUZOSIN) [Suspect]
     Indication: ESSENTIAL HYPERTENSION
     Dosage: 10 MG, /D, ORAL
     Route: 048

REACTIONS (4)
  - BLOOD SODIUM DECREASED [None]
  - DIZZINESS [None]
  - ELECTROCARDIOGRAM QT PROLONGED [None]
  - HYPOTENSION [None]
